FAERS Safety Report 6131172-9 (Version None)
Quarter: 2009Q1

REPORT INFORMATION
  Report Type: 
  Country: None (occurrence: None)
  Receive Date: 20090325
  Receipt Date: 20090316
  Transmission Date: 20090719
  Serious: Yes (Hospitalization)
  Sender: FDA-Public Use
  Company Number: HR-WYE-H08494009

PATIENT
  Age: 78 Year
  Sex: Female

DRUGS (2)
  1. AMIODARONE HCL [Suspect]
     Indication: ATRIAL FIBRILLATION
     Dosage: DOSE UNKNOWN
     Route: 048
  2. WARFARIN SODIUM [Interacting]
     Indication: ATRIAL FIBRILLATION
     Dosage: DOSE UNKNOWN
     Route: 048

REACTIONS (7)
  - CATARACT [None]
  - COAGULATION TIME PROLONGED [None]
  - DRUG INTERACTION [None]
  - HYPERKERATOSIS [None]
  - INTERSTITIAL LUNG DISEASE [None]
  - KERATOPATHY [None]
  - PLATELET COUNT DECREASED [None]
